FAERS Safety Report 25100904 (Version 1)
Quarter: 2025Q1

REPORT INFORMATION
  Report Type: Report from Study
  Country: US (occurrence: US)
  Receive Date: 20250320
  Receipt Date: 20250320
  Transmission Date: 20250409
  Serious: Yes (Hospitalization)
  Sender: EISAI
  Company Number: US-Eisai-EC-2025-186032

PATIENT
  Age: 61 Year
  Sex: Female

DRUGS (13)
  1. LENVIMA [Suspect]
     Active Substance: LENVATINIB
     Indication: Thyroid cancer
     Dates: start: 20240511, end: 20240926
  2. LENVIMA [Suspect]
     Active Substance: LENVATINIB
     Indication: Metastases to lymph nodes
     Dates: start: 20241004, end: 20241006
  3. LENVIMA [Suspect]
     Active Substance: LENVATINIB
     Dates: start: 20241007, end: 20241109
  4. LENVIMA [Suspect]
     Active Substance: LENVATINIB
     Dates: start: 20241118, end: 20241205
  5. LENVIMA [Suspect]
     Active Substance: LENVATINIB
     Dates: start: 20241213, end: 20250211
  6. HYDROCHLOROTHIAZIDE [Concomitant]
     Active Substance: HYDROCHLOROTHIAZIDE
  7. LOSARTAN [Concomitant]
     Active Substance: LOSARTAN
  8. AMLODIPINE [Concomitant]
     Active Substance: AMLODIPINE BESYLATE
  9. CARVEDILOL [Concomitant]
     Active Substance: CARVEDILOL
  10. KEYTRUDA [Concomitant]
     Active Substance: PEMBROLIZUMAB
     Dosage: DOSE AND FREQUENCY UNKNOWN
  11. UREA [Concomitant]
     Active Substance: UREA
  12. ENTECAVIR [Concomitant]
     Active Substance: ENTECAVIR
  13. PANTOPRAZOLE [Concomitant]
     Active Substance: PANTOPRAZOLE

REACTIONS (1)
  - Haematoma [Not Recovered/Not Resolved]

NARRATIVE: CASE EVENT DATE: 20250220
